FAERS Safety Report 4391732-2 (Version None)
Quarter: 2004Q3

REPORT INFORMATION
  Report Type: 
  Country: None (occurrence: None)
  Receive Date: 20040701
  Receipt Date: 20040621
  Transmission Date: 20050211
  Serious: Yes (Death)
  Sender: FDA-Public Use
  Company Number: 2003116181

PATIENT
  Age: 89 Year
  Sex: Male

DRUGS (5)
  1. GEODON [Suspect]
     Indication: AGITATION
     Dosage: INTRAMUSCULAR
     Route: 030
     Dates: start: 20031026, end: 20031026
  2. QUETIAPINE FUMARATE (QUETIAPINE FUMARATE) [Suspect]
     Indication: ILL-DEFINED DISORDER
     Dosage: 25 MG
  3. PIP/TAZO (PIPERACILLIN SODIUM, TAZOBACTAM SODIUM) [Concomitant]
  4. METOPROLOL TARTRATE [Concomitant]
  5. HALOPERIDOL [Concomitant]

REACTIONS (2)
  - CARDIAC ARREST [None]
  - ELECTROMECHANICAL DISSOCIATION [None]
